FAERS Safety Report 22393914 (Version 1)
Quarter: 2023Q2

REPORT INFORMATION
  Report Type: Report from Study
  Country: US (occurrence: US)
  Receive Date: 20230601
  Receipt Date: 20230601
  Transmission Date: 20230722
  Serious: Yes (Other)
  Sender: FDA-Public Use
  Company Number: US-ABBVIE-5185538

PATIENT
  Age: 67 Year
  Sex: Female

DRUGS (1)
  1. RINVOQ [Suspect]
     Active Substance: UPADACITINIB
     Indication: Rheumatoid arthritis
     Route: 048
     Dates: start: 20190101

REACTIONS (8)
  - Knee arthroplasty [Recovering/Resolving]
  - Pain [Recovering/Resolving]
  - Tendon injury [Unknown]
  - Bursitis [Recovering/Resolving]
  - Intervertebral disc protrusion [Unknown]
  - Fall [Recovering/Resolving]
  - Tendonitis [Recovering/Resolving]
  - Fatigue [Recovering/Resolving]

NARRATIVE: CASE EVENT DATE: 20210530
